FAERS Safety Report 10079324 (Version 1)
Quarter: 2014Q2

REPORT INFORMATION
  Report Type: Spontaneous
  Country: US (occurrence: US)
  Receive Date: 20140415
  Receipt Date: 20140415
  Transmission Date: 20141212
  Serious: Yes (Hospitalization, Disabling, Other)
  Sender: FDA-Public Use
  Company Number: US-ASTRAZENECA-2014SE24633

PATIENT
  Age: 73 Year
  Sex: Female
  Weight: 54.4 kg

DRUGS (11)
  1. LISINOPRIL [Suspect]
     Indication: HYPERTENSION
     Route: 048
     Dates: start: 2012
  2. TOPROL  XL [Suspect]
     Indication: HYPERTENSION
     Route: 048
  3. TOPROL  XL [Suspect]
     Indication: HYPERTENSION
     Dosage: GENERIC
     Route: 048
  4. TOPROL  XL [Suspect]
     Indication: HYPERTENSION
     Dosage: GENERIC
     Route: 048
     Dates: start: 2010
  5. TOPROL  XL [Suspect]
     Indication: HYPERTENSION
     Dosage: SPLIT DOSES OF GENERIC
     Route: 048
  6. AMLODIPINE [Concomitant]
     Indication: HYPERTENSION
  7. COSOPT [Concomitant]
     Indication: GLAUCOMA
     Dosage: 2 DROPS IN LEFT EYE BID
     Route: 047
  8. LUMIGAN [Concomitant]
     Indication: GLAUCOMA
     Dosage: I DROP IN EACH EYE DAILY
     Route: 047
  9. PRADAXA [Concomitant]
     Indication: ANTICOAGULANT THERAPY
  10. LORAZEPAM [Concomitant]
     Indication: SLEEP DISORDER
  11. LORAZEPAM [Concomitant]
     Indication: ANXIETY

REACTIONS (10)
  - Cerebrovascular accident [Recovered/Resolved with Sequelae]
  - Asthenia [Not Recovered/Not Resolved]
  - Asthenia [Not Recovered/Not Resolved]
  - Glaucoma [Not Recovered/Not Resolved]
  - Fatigue [Not Recovered/Not Resolved]
  - Anxiety [Unknown]
  - Insomnia [Not Recovered/Not Resolved]
  - Atrial fibrillation [Not Recovered/Not Resolved]
  - Body height decreased [Not Recovered/Not Resolved]
  - Intentional product misuse [Not Recovered/Not Resolved]
